FAERS Safety Report 18968136 (Version 1)
Quarter: 2021Q1

REPORT INFORMATION
  Report Type: Spontaneous
  Country: US (occurrence: US)
  Receive Date: 20210303
  Receipt Date: 20210303
  Transmission Date: 20210420
  Serious: Yes (Death)
  Sender: FDA-Public Use
  Company Number: None

PATIENT
  Age: 58 Year
  Sex: Male
  Weight: 94.8 kg

DRUGS (2)
  1. ZITHROMAX [Suspect]
     Active Substance: AZITHROMYCIN DIHYDRATE
     Indication: COVID-19
     Dosage: ?          OTHER ROUTE:IVPB?
     Dates: start: 20200527, end: 20200603
  2. ROCEPHIN [Suspect]
     Active Substance: CEFTRIAXONE SODIUM
     Indication: COVID-19
     Dosage: ?          OTHER ROUTE:IVPB?
     Dates: start: 20200527, end: 20200602

REACTIONS (1)
  - Death [None]

NARRATIVE: CASE EVENT DATE: 20200531
